FAERS Safety Report 22770683 (Version 5)
Quarter: 2023Q4

REPORT INFORMATION
  Report Type: Report from Study
  Country: CL (occurrence: CL)
  Receive Date: 20230801
  Receipt Date: 20231026
  Transmission Date: 20240109
  Serious: Yes (Other)
  Sender: FDA-Public Use
  Company Number: CL-JNJFOC-20221228337

PATIENT
  Age: 54 Year
  Sex: Female
  Weight: 69 kg

DRUGS (2)
  1. SIMPONI [Suspect]
     Active Substance: GOLIMUMAB
     Indication: Rheumatoid arthritis
     Dosage: LATEST APPLICATION: 12-JUN-2023
     Route: 058
     Dates: start: 20221102, end: 20230612
  2. LEFLUNOMIDE [Concomitant]
     Active Substance: LEFLUNOMIDE
     Indication: Product used for unknown indication
     Route: 048

REACTIONS (11)
  - Syncope [Unknown]
  - White blood cell count decreased [Unknown]
  - Back pain [Unknown]
  - Fatigue [Recovered/Resolved]
  - Arthralgia [Recovered/Resolved]
  - Nausea [Recovered/Resolved]
  - Hypoaesthesia [Unknown]
  - Anxiety [Recovered/Resolved]
  - Contusion [Recovered/Resolved]
  - Abdominal pain upper [Recovered/Resolved]
  - Weight decreased [Recovered/Resolved]

NARRATIVE: CASE EVENT DATE: 20230101
